FAERS Safety Report 19180176 (Version 1)
Quarter: 2021Q2

REPORT INFORMATION
  Report Type: Spontaneous
  Country: ID (occurrence: ID)
  Receive Date: 20210426
  Receipt Date: 20210426
  Transmission Date: 20210717
  Serious: Yes (Hospitalization)
  Sender: FDA-Public Use
  Company Number: ID-LUPIN PHARMACEUTICALS INC.-2021-05329

PATIENT
  Age: 28 Year
  Sex: Male

DRUGS (4)
  1. CETIRIZINE [Suspect]
     Active Substance: CETIRIZINE HYDROCHLORIDE
     Indication: FILARIASIS LYMPHATIC
     Dosage: 10 MILLIGRAM X 2
     Route: 065
  2. ALBENDAZOLE. [Suspect]
     Active Substance: ALBENDAZOLE
     Indication: FILARIASIS LYMPHATIC
     Dosage: 400 MILLIGRAM X 1
     Route: 065
  3. DIETHYLCARBAMAZINE [Suspect]
     Active Substance: DIETHYLCARBAMAZINE
     Indication: FILARIASIS LYMPHATIC
     Dosage: 100 MILLIGRAM X 5
     Route: 065
  4. VITAMIN B COMPLEX [Suspect]
     Active Substance: CYANOCOBALAMIN\DEXPANTHENOL\NIACINAMIDE\PYRIDOXINE HYDROCHLORIDE\RIBOFLAVIN 5^-PHOSPHATE SODIUM\THIAMINE HYDROCHLORIDE\VITAMIN B COMPLEX
     Indication: FILARIASIS LYMPHATIC
     Dosage: UNK UNK, BID
     Route: 065

REACTIONS (1)
  - Drug ineffective [Unknown]
